FAERS Safety Report 4608848-5 (Version None)
Quarter: 2005Q1

REPORT INFORMATION
  Report Type: 
  Country: None (occurrence: None)
  Receive Date: 20050315
  Receipt Date: 20050308
  Transmission Date: 20050727
  Serious: Yes (Other)
  Sender: FDA-Public Use
  Company Number: GB-GLAXOSMITHKLINE-B0374124A

PATIENT
  Age: 2 Year
  Sex: Female

DRUGS (1)
  1. AUGMENTIN '125' [Suspect]
     Indication: OTITIS MEDIA
     Dosage: 2.5ML TWICE PER DAY
     Route: 048
     Dates: start: 20050211, end: 20050214

REACTIONS (2)
  - HYPERAESTHESIA [None]
  - RASH PUSTULAR [None]
